FAERS Safety Report 23215819 (Version 1)
Quarter: 2023Q4

REPORT INFORMATION
  Report Type: Spontaneous
  Country: US (occurrence: US)
  Receive Date: 20231122
  Receipt Date: 20231122
  Transmission Date: 20240109
  Serious: No
  Sender: FDA-Public Use
  Company Number: ENDG23-04281

PATIENT
  Age: 68 Year
  Sex: Female

DRUGS (9)
  1. VARENICLINE [Suspect]
     Active Substance: VARENICLINE
     Indication: Product used for unknown indication
     Dosage: UNK UNKNOWN, UNKNOWN
     Route: 048
     Dates: start: 20230808, end: 202308
  2. OZEMPIC [Suspect]
     Active Substance: SEMAGLUTIDE
     Indication: Type 2 diabetes mellitus
     Dosage: UNK UNKNOWN, UNKNOWN
     Route: 065
  3. UNSPECIFIED INGREDIENT [Concomitant]
     Active Substance: UNSPECIFIED INGREDIENT
     Indication: Thyroid disorder
     Dosage: UNK UNKNOWN, UNKNOWN
     Route: 065
  4. UNSPECIFIED INGREDIENT [Concomitant]
     Active Substance: UNSPECIFIED INGREDIENT
     Indication: Anxiety disorder
     Dosage: UNK UNKNOWN, UNKNOWN
     Route: 065
  5. GUT MEDICATION [Concomitant]
     Indication: Gastrointestinal disorder
     Dosage: UNK UNKNOWN, UNKNOWN
     Route: 065
  6. IRON [Concomitant]
     Active Substance: IRON
     Indication: Product used for unknown indication
     Dosage: UNK UNKNOWN, UNKNOWN
     Route: 065
  7. UNSPECIFIED INGREDIENT [Concomitant]
     Active Substance: UNSPECIFIED INGREDIENT
     Indication: Sleep disorder
     Dosage: UNK UNKNOWN, UNKNOWN
     Route: 065
  8. VITAMIN D NOS [Concomitant]
     Active Substance: VITAMIN D NOS
     Indication: Product used for unknown indication
     Dosage: UNK UNKNOWN, UNKNOWN
     Route: 065
  9. UNSPECIFIED INGREDIENT [Concomitant]
     Active Substance: UNSPECIFIED INGREDIENT
     Indication: Blood pressure abnormal
     Dosage: UNK UNKNOWN, UNKNOWN
     Route: 065

REACTIONS (3)
  - Muscle contractions involuntary [Unknown]
  - Pain [Unknown]
  - Drug interaction [Unknown]

NARRATIVE: CASE EVENT DATE: 20230801
